FAERS Safety Report 4856532-5 (Version None)
Quarter: 2005Q4

REPORT INFORMATION
  Report Type: 
  Country: None (occurrence: None)
  Receive Date: 20051219
  Receipt Date: 20050103
  Transmission Date: 20060501
  Serious: No
  Sender: FDA-Public Use
  Company Number: US-GLAXOSMITHKLINE-A0539040A

PATIENT
  Age: 22 Year
  Sex: Female

DRUGS (2)
  1. NICODERM CQ [Suspect]
     Dates: start: 20050102
  2. TYLENOL (CAPLET) [Concomitant]

REACTIONS (4)
  - APPLICATION SITE PRURITUS [None]
  - INSOMNIA [None]
  - PARAESTHESIA [None]
  - PRURITUS GENERALISED [None]
